FAERS Safety Report 18480548 (Version 1)
Quarter: 2020Q4

REPORT INFORMATION
  Report Type: Spontaneous
  Country: CN (occurrence: CN)
  Receive Date: 20201109
  Receipt Date: 20201109
  Transmission Date: 20210114
  Serious: Yes (Life-Threatening, Hospitalization)
  Sender: FDA-Public Use
  Company Number: CN-PFIZER INC-2020431756

PATIENT
  Sex: Female

DRUGS (3)
  1. METHOTREXATE. [Suspect]
     Active Substance: METHOTREXATE
     Indication: CHEMOTHERAPY
     Dosage: 0.024 G, 1X/DAY
     Route: 041
     Dates: start: 20200823, end: 20200827
  2. METHOTREXATE. [Suspect]
     Active Substance: METHOTREXATE
     Dosage: 0.024 G, 1X/DAY
     Route: 041
     Dates: start: 20200908, end: 20200912
  3. METHOTREXATE. [Suspect]
     Active Substance: METHOTREXATE
     Dosage: 0.024 G, 1X/DAY
     Route: 041
     Dates: start: 20200923, end: 20200927

REACTIONS (3)
  - Myelosuppression [Recovering/Resolving]
  - Off label use [Recovering/Resolving]
  - Product use issue [Recovering/Resolving]

NARRATIVE: CASE EVENT DATE: 20201003
